FAERS Safety Report 4578529-5 (Version None)
Quarter: 2005Q1

REPORT INFORMATION
  Report Type: 
  Country: None (occurrence: None)
  Receive Date: 20050209
  Receipt Date: 20050124
  Transmission Date: 20050727
  Serious: Yes (Hospitalization)
  Sender: FDA-Public Use
  Company Number: US_0501110504

PATIENT
  Age: 73 Week
  Sex: Male
  Weight: 8 kg

DRUGS (1)
  1. HUMATROPE [Suspect]
     Indication: GROWTH RETARDATION
     Dosage: 1 IU DAY
     Dates: start: 20040804

REACTIONS (2)
  - COLITIS [None]
  - URINARY TRACT INFECTION [None]
